FAERS Safety Report 7866796-1 (Version None)
Quarter: 2011Q4

REPORT INFORMATION
  Report Type: 
  Country: None (occurrence: None)
  Receive Date: 20111028
  Receipt Date: 20110822
  Transmission Date: 20120403
  Serious: No
  Sender: FDA-Public Use
  Company Number: US-GLAXOSMITHKLINE-A0941860A

PATIENT
  Age: 80 Year
  Sex: Male

DRUGS (10)
  1. ADVAIR DISKUS 100/50 [Suspect]
     Indication: CHRONIC OBSTRUCTIVE PULMONARY DISEASE
     Dosage: 1PUFF TWICE PER DAY
     Route: 055
     Dates: start: 20090101
  2. ARICEPT [Concomitant]
  3. PLAVIX [Concomitant]
  4. COREG [Concomitant]
  5. ASPIRIN [Concomitant]
  6. PRAVACHOL [Concomitant]
  7. LORAZEPAM [Concomitant]
  8. ACIPHEX [Concomitant]
  9. FLOMAX [Concomitant]
  10. SPIRIVA [Concomitant]

REACTIONS (3)
  - PHARYNGEAL DISORDER [None]
  - FUNGAL INFECTION [None]
  - ABDOMINAL PAIN UPPER [None]
